FAERS Safety Report 25760887 (Version 3)
Quarter: 2025Q4

REPORT INFORMATION
  Report Type: Spontaneous
  Country: EU (occurrence: EU)
  Receive Date: 20250904
  Receipt Date: 20251009
  Transmission Date: 20260117
  Serious: Yes (Hospitalization)
  Sender: MERCK SHARP & DOHME LLC
  Company Number: EU-009507513-2312024

PATIENT
  Age: 76 Year
  Sex: Female

DRUGS (6)
  1. SOTATERCEPT [Suspect]
     Active Substance: SOTATERCEPT
     Indication: Pulmonary arterial hypertension
     Dosage: DOSAGE: 0.7 MG/KG
     Route: 058
  2. SOTATERCEPT [Suspect]
     Active Substance: SOTATERCEPT
     Dosage: THEN INCREASED ACCORDING TO PROTOCOL.
     Route: 058
  3. SOTATERCEPT [Suspect]
     Active Substance: SOTATERCEPT
  4. SOTATERCEPT [Suspect]
     Active Substance: SOTATERCEPT
  5. ELIQUIS [Concomitant]
     Active Substance: APIXABAN
  6. REMODULIN [Suspect]
     Active Substance: TREPROSTINIL

REACTIONS (11)
  - Streptococcal infection [Unknown]
  - Puncture site pain [Unknown]
  - Puncture site abscess [Unknown]
  - Tachycardia [Unknown]
  - Infusion site swelling [Unknown]
  - Headache [Recovered/Resolved]
  - Infusion site induration [Unknown]
  - Epistaxis [Recovered/Resolved]
  - Infusion site discolouration [Unknown]
  - Gingival bleeding [Unknown]
  - Headache [Unknown]
